FAERS Safety Report 8104121-1 (Version None)
Quarter: 2012Q1

REPORT INFORMATION
  Report Type: 
  Country: None (occurrence: None)
  Receive Date: 20120201
  Receipt Date: 20120127
  Transmission Date: 20120608
  Serious: Yes (Disabling, Other)
  Sender: FDA-Public Use
  Company Number: CA-BAYER-2012-008827

PATIENT
  Sex: Female

DRUGS (1)
  1. AVELOX [Suspect]
     Indication: SINUSITIS

REACTIONS (9)
  - PAIN [None]
  - GAIT DISTURBANCE [None]
  - ARTHRALGIA [None]
  - MALAISE [None]
  - SKIN DISCOLOURATION [None]
  - FATIGUE [None]
  - MUSCULAR WEAKNESS [None]
  - HEART RATE INCREASED [None]
  - ACTIVITIES OF DAILY LIVING IMPAIRED [None]
